FAERS Safety Report 15705642 (Version 1)
Quarter: 2018Q4

REPORT INFORMATION
  Report Type: Spontaneous
  Country: US (occurrence: US)
  Receive Date: 20181210
  Receipt Date: 20181210
  Transmission Date: 20190205
  Serious: Yes (Other)
  Sender: FDA-Public Use
  Company Number: None

PATIENT
  Sex: Female
  Weight: 76.5 kg

DRUGS (9)
  1. METFORMIN [Concomitant]
     Active Substance: METFORMIN HYDROCHLORIDE
  2. MAGNESIUM [Concomitant]
     Active Substance: MAGNESIUM
  3. NEXIUM [Concomitant]
     Active Substance: ESOMEPRAZOLE MAGNESIUM
  4. GLIMPERIDE [Concomitant]
     Active Substance: GLIMEPIRIDE
  5. INCRUSE ELLIPTA [Suspect]
     Active Substance: UMECLIDINIUM BROMIDE
     Indication: BRONCHITIS CHRONIC
     Dosage: ?          OTHER STRENGTH:MCG;QUANTITY:1 PUFF(S);?
     Route: 055
     Dates: start: 20181207, end: 20181210
  6. CLARITIN [Concomitant]
     Active Substance: LORATADINE
  7. CALCIUM [Concomitant]
     Active Substance: CALCIUM
  8. BASAGLAR [Concomitant]
     Active Substance: INSULIN GLARGINE
  9. POTASSIUM [Concomitant]
     Active Substance: POTASSIUM

REACTIONS (6)
  - Eye swelling [None]
  - Throat tightness [None]
  - Exophthalmos [None]
  - Urticaria [None]
  - Lip swelling [None]
  - Tinnitus [None]
